FAERS Safety Report 8515016 (Version 3)
Quarter: 2013Q3

REPORT INFORMATION
  Report Type: Report from Study
  Country: SE (occurrence: SE)
  Receive Date: 20120417
  Receipt Date: 20130916
  Transmission Date: 20140515
  Serious: Yes (Life-Threatening, Hospitalization, Other)
  Sender: FDA-Public Use
  Company Number: SE-AMGEN-SWESP2012021938

PATIENT
  Age: 54 Year
  Sex: Male

DRUGS (7)
  1. ETANERCEPT [Suspect]
     Indication: RHEUMATOID ARTHRITIS
     Dosage: 50 MG, QWK
     Route: 058
     Dates: start: 20091012, end: 201201
  2. METOJECT [Concomitant]
     Indication: RHEUMATOID ARTHRITIS
     Dosage: 20 MG, WEEKLY
     Dates: start: 200910, end: 201201
  3. OMEPRAZOL                          /00661201/ [Concomitant]
     Dosage: UNK
  4. FOLACIN                            /00198401/ [Concomitant]
     Dosage: 5 MG, UNK
  5. PANODIL [Concomitant]
     Dosage: UNK
  6. ORUDIS [Concomitant]
     Dosage: UNK
  7. TIPAROL [Concomitant]
     Dosage: UNK

REACTIONS (1)
  - Malignant respiratory tract neoplasm [Unknown]
